FAERS Safety Report 8860463 (Version 2)
Quarter: 2013Q2

REPORT INFORMATION
  Report Type: Spontaneous
  Country: US (occurrence: US)
  Receive Date: 20121025
  Receipt Date: 20130401
  Transmission Date: 20140414
  Serious: Yes (Hospitalization)
  Sender: FDA-Public Use
  Company Number: US-009507513-1210USA010056

PATIENT
  Sex: 0

DRUGS (3)
  1. ISENTRESS [Suspect]
     Indication: HIV INFECTION
     Dosage: UNK
     Route: 048
     Dates: end: 2012
  2. ISENTRESS [Suspect]
     Dosage: UNK
     Route: 048
     Dates: start: 2012, end: 2012
  3. TELAPREVIR [Concomitant]
     Indication: HEPATITIS C
     Dosage: UNK

REACTIONS (2)
  - Rash [Recovered/Resolved]
  - Rash [Unknown]
